FAERS Safety Report 4701747-X (Version None)
Quarter: 2005Q2

REPORT INFORMATION
  Report Type: 
  Country: None (occurrence: None)
  Receive Date: 20050627
  Receipt Date: 20050615
  Transmission Date: 20051028
  Serious: Yes (Death)
  Sender: FDA-Public Use
  Company Number: HQWYE422614JUN05

PATIENT
  Age: 47 Year
  Sex: Male

DRUGS (2)
  1. RAPAMUNE [Suspect]
     Indication: PANCREAS ISLET CELL TRANSPLANT
  2. INSULIN [Concomitant]

REACTIONS (1)
  - NEUROENDOCRINE CARCINOMA OF THE SKIN [None]
